FAERS Safety Report 25927991 (Version 3)
Quarter: 2025Q4

REPORT INFORMATION
  Report Type: Spontaneous
  Country: JP (occurrence: JP)
  Receive Date: 20251016
  Receipt Date: 20251211
  Transmission Date: 20260118
  Serious: Yes (Other)
  Sender: ASTELLAS
  Company Number: JP-ASTELLAS-2025-AER-056706

PATIENT
  Age: 74 Year
  Sex: Male
  Weight: 55 kg

DRUGS (24)
  1. VYLOY [Suspect]
     Active Substance: ZOLBETUXIMAB-CLZB
     Indication: Gastric cancer
     Dosage: 1270MG/DAY
     Route: 042
     Dates: start: 20250902, end: 20250902
  2. VYLOY [Suspect]
     Active Substance: ZOLBETUXIMAB-CLZB
     Route: 042
     Dates: start: 20250916, end: 20250916
  3. FLUOROURACIL [Suspect]
     Active Substance: FLUOROURACIL
     Indication: Gastric cancer
     Dosage: 3000MG/DAY
     Route: 042
     Dates: end: 20250415
  4. FLUOROURACIL [Suspect]
     Active Substance: FLUOROURACIL
     Route: 042
     Dates: start: 20250902
  5. FLUOROURACIL [Suspect]
     Active Substance: FLUOROURACIL
     Route: 042
     Dates: start: 20250617, end: 20250819
  6. OXALIPLATIN [Suspect]
     Active Substance: OXALIPLATIN
     Indication: Gastric cancer
     Dosage: 110MG/DAY
     Route: 042
     Dates: end: 20250415
  7. OXALIPLATIN [Suspect]
     Active Substance: OXALIPLATIN
     Route: 042
     Dates: start: 20250617, end: 20250819
  8. OXALIPLATIN [Suspect]
     Active Substance: OXALIPLATIN
     Route: 042
     Dates: start: 20250902
  9. LEVOLEUCOVORIN CALCIUM [Suspect]
     Active Substance: LEVOLEUCOVORIN CALCIUM
     Indication: Gastric cancer
     Dosage: 300MG/DAY
     Route: 042
     Dates: end: 20250415
  10. LEVOLEUCOVORIN CALCIUM [Suspect]
     Active Substance: LEVOLEUCOVORIN CALCIUM
     Route: 042
     Dates: start: 20250617, end: 20250819
  11. LEVOLEUCOVORIN CALCIUM [Suspect]
     Active Substance: LEVOLEUCOVORIN CALCIUM
     Route: 042
     Dates: start: 20250902
  12. CALBLOCK tablet [Concomitant]
     Indication: Hypertension
     Route: 048
  13. OLMETEC OD tablet [Concomitant]
     Indication: Hypertension
     Route: 048
  14. FEBUXOSTAT [Concomitant]
     Active Substance: FEBUXOSTAT
     Indication: Hyperuricaemia
     Route: 048
  15. SODIUM FERROUS CITRATE tablet [Concomitant]
     Indication: Gastric cancer
     Route: 048
  16. ESOMEPRAZOLE [Concomitant]
     Active Substance: ESOMEPRAZOLE
     Indication: Gastric cancer
     Route: 048
  17. MIYA BM tablet [Concomitant]
     Indication: Abnormal faeces
     Route: 048
  18. MAGNESIUM OXIDE [Concomitant]
     Active Substance: MAGNESIUM OXIDE
     Indication: Constipation
     Route: 048
  19. PALONOSETRON I.V. Infusion [Concomitant]
     Indication: Gastric cancer
     Route: 042
     Dates: end: 20250902
  20. Arokaris I.V.infusion [Concomitant]
     Indication: Gastric cancer
     Route: 042
     Dates: end: 20250902
  21. Gaster I.V. Infusion [Concomitant]
     Indication: Gastric cancer
     Route: 042
     Dates: end: 20251202
  22. POLARAMINE I.V. Infusion [Concomitant]
     Indication: Gastric cancer
     Route: 042
     Dates: end: 20250902
  23. PRIMPERAN [Concomitant]
     Active Substance: METOCLOPRAMIDE HYDROCHLORIDE
     Indication: Nausea
     Route: 042
     Dates: start: 20250916
  24. FUROSEMIDE [Concomitant]
     Active Substance: FUROSEMIDE
     Indication: Oedema
     Route: 065
     Dates: start: 20251014

REACTIONS (6)
  - Decreased appetite [Recovering/Resolving]
  - Hypoalbuminaemia [Recovered/Resolved]
  - Oedema [Recovering/Resolving]
  - Ascites [Recovering/Resolving]
  - Pleural effusion [Recovering/Resolving]
  - Nausea [Recovered/Resolved]

NARRATIVE: CASE EVENT DATE: 20250902
